FAERS Safety Report 7263781-8 (Version None)
Quarter: 2011Q1

REPORT INFORMATION
  Report Type: 
  Country: None (occurrence: None)
  Receive Date: 20110130
  Receipt Date: 20101108
  Transmission Date: 20110831
  Serious: No
  Sender: FDA-Public Use
  Company Number: US-ABBOTT-10P-163-0684308-00

PATIENT
  Weight: 107.6 kg

DRUGS (10)
  1. ALBUTEROL [Concomitant]
     Indication: RESPIRATORY THERAPY
  2. FENTANYL [Concomitant]
     Indication: PAIN
     Dosage: PATCH
     Route: 062
  3. HUMIRA [Suspect]
     Indication: ANKYLOSING SPONDYLITIS
     Dates: start: 20101001
  4. PREDNISONE [Concomitant]
     Indication: PRODUCT USED FOR UNKNOWN INDICATION
  5. XANAX [Concomitant]
     Indication: PRODUCT USED FOR UNKNOWN INDICATION
  6. ADVAIR [Concomitant]
     Indication: CHRONIC OBSTRUCTIVE PULMONARY DISEASE
     Dosage: 500/150
  7. LORCET-HD [Concomitant]
     Indication: PAIN
  8. LUTEIN [Concomitant]
     Indication: MACULAR DEGENERATION
  9. PREVACID [Concomitant]
     Indication: PRODUCT USED FOR UNKNOWN INDICATION
  10. PROZAC [Concomitant]
     Indication: PRODUCT USED FOR UNKNOWN INDICATION

REACTIONS (6)
  - SPUTUM DISCOLOURED [None]
  - WRONG TECHNIQUE IN DRUG USAGE PROCESS [None]
  - INCORRECT DOSE ADMINISTERED [None]
  - COUGH [None]
  - SINUSITIS [None]
  - INCORRECT ROUTE OF DRUG ADMINISTRATION [None]
